FAERS Safety Report 9907266 (Version 3)
Quarter: 2014Q1

REPORT INFORMATION
  Report Type: Spontaneous
  Country: JP (occurrence: JP)
  Receive Date: 20140218
  Receipt Date: 20140328
  Transmission Date: 20141002
  Serious: Yes (Other)
  Sender: FDA-Public Use
  Company Number: JP-JNJFOC-20140209163

PATIENT
  Age: 42 Year
  Sex: Male
  Weight: 90 kg

DRUGS (7)
  1. SOVRIAD [Suspect]
     Indication: CHRONIC HEPATITIS C
     Route: 048
     Dates: start: 20140124
  2. COPEGUS [Suspect]
     Indication: CHRONIC HEPATITIS C
     Route: 048
     Dates: start: 20140124
  3. PEGASYS [Suspect]
     Indication: CHRONIC HEPATITIS C
     Route: 058
     Dates: start: 20140123
  4. NESINA [Concomitant]
     Indication: DIABETES MELLITUS
     Route: 048
  5. AMOBAN [Concomitant]
     Dosage: FORM- PERORAL
     Route: 048
  6. BLOPRESS [Concomitant]
     Indication: HYPERTENSION
     Route: 048
  7. LENDORMIN [Concomitant]
     Dosage: FORM-PERORAL
     Route: 048

REACTIONS (2)
  - Hyperuricaemia [Recovered/Resolved]
  - Hyperbilirubinaemia [Recovered/Resolved]
